FAERS Safety Report 24375617 (Version 2)
Quarter: 2024Q4

REPORT INFORMATION
  Report Type: Spontaneous
  Country: NL (occurrence: NL)
  Receive Date: 20240928
  Receipt Date: 20241029
  Transmission Date: 20250115
  Serious: Yes (Other)
  Sender: ROCHE
  Company Number: NL-002147023-NVSC2024NL190177

PATIENT
  Age: 40 Year
  Sex: Female

DRUGS (2)
  1. XOLAIR [Suspect]
     Active Substance: OMALIZUMAB
     Indication: Chronic spontaneous urticaria
     Dosage: UNK (INJECTION)
     Route: 065
     Dates: start: 202204
  2. XOLAIR [Suspect]
     Active Substance: OMALIZUMAB
     Dosage: 2 DOSAGE FORM, Q2MO (2 INJECTIONS TWICE A MONTH)
     Route: 050
     Dates: end: 2020

REACTIONS (3)
  - Angioedema [Unknown]
  - Therapeutic product effect incomplete [Unknown]
  - Urticaria [Unknown]
